FAERS Safety Report 6035288-7 (Version None)
Quarter: 2009Q1

REPORT INFORMATION
  Report Type: 
  Country: None (occurrence: None)
  Receive Date: 20090109
  Receipt Date: 20090102
  Transmission Date: 20090719
  Serious: Yes (Hospitalization)
  Sender: FDA-Public Use
  Company Number: US025242

PATIENT
  Sex: Male
  Weight: 68 kg

DRUGS (11)
  1. ARSENIC TRIOXIDE [Suspect]
     Indication: MYELODYSPLASTIC SYNDROME
     Dosage: 0.1 MG/KG DAYS 1-5 Q WK INTRAVENOUS DRIP
     Route: 041
     Dates: start: 20081209
  2. DECITABINE [Suspect]
     Indication: MYELODYSPLASTIC SYNDROME
     Dosage: 20 MG/M2 DAYS 1-5 INTRAVENOUS
     Route: 042
     Dates: start: 20081209
  3. ASCORBIC ACID [Suspect]
     Indication: MYELODYSPLASTIC SYNDROME
     Dosage: 1000 MG DAYS 1-5 Q WK INTRAVENOUS
     Route: 042
     Dates: start: 20081209
  4. LYRICA [Concomitant]
  5. METOPROLOL TARTRATE [Concomitant]
  6. LISINOPRIL [Concomitant]
  7. ZETIA [Concomitant]
  8. FLOMAX /01280302/ [Concomitant]
  9. ALLOPURINOL [Concomitant]
  10. HYDREA [Concomitant]
  11. PROTONIX /01263201/ [Concomitant]

REACTIONS (8)
  - HAEMATEMESIS [None]
  - LOWER GASTROINTESTINAL HAEMORRHAGE [None]
  - MELAENA [None]
  - PULMONARY HAEMORRHAGE [None]
  - RED BLOOD CELL COUNT DECREASED [None]
  - RESPIRATORY TRACT HAEMORRHAGE [None]
  - THROMBOCYTOPENIA [None]
  - WHITE BLOOD CELL COUNT INCREASED [None]
